FAERS Safety Report 5372155-6 (Version None)
Quarter: 2007Q2

REPORT INFORMATION
  Report Type: 
  Country: None (occurrence: None)
  Receive Date: 20070627
  Receipt Date: 20070618
  Transmission Date: 20071010
  Serious: Yes (Other)
  Sender: FDA-Public Use
  Company Number: US-ROCHE-499050

PATIENT
  Age: 48 Year
  Sex: Female
  Weight: 60.3 kg

DRUGS (3)
  1. PEGASYS [Suspect]
     Route: 058
     Dates: start: 20070302
  2. RIBAPAK [Suspect]
     Route: 048
     Dates: start: 20070302
  3. HORMONES [Concomitant]

REACTIONS (2)
  - INFLUENZA LIKE ILLNESS [None]
  - MASTITIS [None]
